FAERS Safety Report 18963246 (Version 1)
Quarter: 2021Q1

REPORT INFORMATION
  Report Type: Spontaneous
  Country: US (occurrence: US)
  Receive Date: 20210303
  Receipt Date: 20210303
  Transmission Date: 20210420
  Serious: No
  Sender: FDA-Public Use
  Company Number: US-NOVAST LABORATORIES LTD.-2020NOV000349

PATIENT

DRUGS (1)
  1. METOPROLOL SUCCINATE. [Suspect]
     Active Substance: METOPROLOL SUCCINATE
     Indication: ARRHYTHMIA
     Dosage: 50 MILLIGRAM
     Route: 065
     Dates: start: 20200409

REACTIONS (3)
  - Product measured potency issue [Unknown]
  - Product use in unapproved indication [Unknown]
  - Blood pressure fluctuation [Unknown]
